FAERS Safety Report 8909826 (Version 2)
Quarter: 2012Q4

REPORT INFORMATION
  Report Type: 
  Country: IT (occurrence: IT)
  Receive Date: 20121115
  Receipt Date: 20121120
  Transmission Date: 20130627
  Serious: Yes (Other)
  Sender: FDA-Public Use
  Company Number: IT-PFIZER INC-2012285146

PATIENT
  Age: 78 Year
  Sex: Female

DRUGS (5)
  1. TORVAST [Suspect]
     Indication: HYPERCHOLESTEROLEMIA
     Dosage: 40 mg, daily
     Route: 048
     Dates: start: 20090101, end: 20120906
  2. METOPROLOL [Concomitant]
  3. COMBISARTAN [Concomitant]
  4. NORADOX [Concomitant]
  5. ZYLORIC [Concomitant]

REACTIONS (1)
  - Hepatitis acute [Unknown]
